FAERS Safety Report 9399670 (Version 2)
Quarter: 2013Q3

REPORT INFORMATION
  Report Type: Spontaneous
  Country: JP (occurrence: None)
  Receive Date: 20130710
  Receipt Date: 20130821
  Transmission Date: 20140515
  Serious: Yes (Hospitalization, Other)
  Sender: FDA-Public Use
  Company Number: AXC-2013-000291

PATIENT
  Age: 15 Year
  Sex: Male

DRUGS (4)
  1. URSODEOXYCHOLIC ACID [Suspect]
     Indication: CHOLANGITIS SCLEROSING
     Route: 048
  2. IBUPROFEN (IBUPROFEN) [Concomitant]
  3. HYDROCHLORIC ACID SEFUOZOPURAN (CZOP) (HYDROCHLORIC) [Concomitant]
  4. FENTANYL (FENTANYL CITRATE) [Concomitant]

REACTIONS (11)
  - Erythema multiforme [None]
  - Pharyngeal haemorrhage [None]
  - Oropharyngeal pain [None]
  - Pharyngeal erosion [None]
  - Colitis ulcerative [None]
  - Abdominal pain [None]
  - Weight decreased [None]
  - Abscess intestinal [None]
  - Arthritis [None]
  - Arthralgia [None]
  - Pyrexia [None]
